FAERS Safety Report 15792718 (Version 1)
Quarter: 2019Q1

REPORT INFORMATION
  Report Type: Spontaneous
  Country: US (occurrence: US)
  Receive Date: 20190107
  Receipt Date: 20190107
  Transmission Date: 20190417
  Serious: No
  Sender: FDA-Public Use
  Company Number: US-TORRENT-00006151

PATIENT
  Age: 11 Year
  Sex: Female
  Weight: 46 kg

DRUGS (1)
  1. MINOCYCLINE HYDROCHLORIDE CAPSULE [Suspect]
     Active Substance: MINOCYCLINE HYDROCHLORIDE
     Indication: ACNE
     Dosage: BID
     Dates: start: 20180323

REACTIONS (3)
  - Product use complaint [Unknown]
  - Dysphagia [Unknown]
  - Wrong technique in product usage process [Unknown]

NARRATIVE: CASE EVENT DATE: 20180323
